FAERS Safety Report 9870851 (Version 1)
Quarter: 2014Q1

REPORT INFORMATION
  Report Type: Spontaneous
  Country: IT (occurrence: None)
  Receive Date: 20140203
  Receipt Date: 20140203
  Transmission Date: 20141002
  Serious: Yes (Hospitalization)
  Sender: FDA-Public Use
  Company Number: 2014AP000777

PATIENT
  Age: 86 Year
  Sex: Male

DRUGS (5)
  1. PANTOPRAZOLE [Suspect]
     Indication: GASTRITIS PROPHYLAXIS
     Route: 048
  2. ENALAPRIL [Concomitant]
  3. FUROSEMIDE (FUROSEMIDE) [Concomitant]
  4. BISOPROLOL HEMIFUMARATE (BISOPROLOL HEMIFUMARATE) [Concomitant]
  5. COUMADIN [Suspect]
     Indication: ATRIAL FIBRILLATION
     Route: 048
     Dates: start: 20080101, end: 20131203

REACTIONS (3)
  - Drug interaction [None]
  - Hypocoagulable state [None]
  - International normalised ratio increased [None]
